FAERS Safety Report 8737334 (Version 2)
Quarter: 2012Q4

REPORT INFORMATION
  Report Type: Spontaneous
  Country: US (occurrence: None)
  Receive Date: 20120805
  Receipt Date: 20120827
  Transmission Date: 20130627
  Serious: Yes (Hospitalization)
  Sender: FDA-Public Use
  Company Number: US-009080

PATIENT
  Age: 38 Year
  Sex: Female
  Weight: 63.5 kg

DRUGS (2)
  1. TRANEXAMIC ACID [Suspect]
     Indication: MENORRHAGIA
     Dosage: (2 TABLETS THREE TIMES DAILY FOR 5 DAYS ORAL)
     Route: 048
     Dates: start: 201206, end: 201207
  2. IMITREX [Concomitant]

REACTIONS (1)
  - PULMONARY EMBOLISM [None]
